FAERS Safety Report 6235241-4 (Version None)
Quarter: 2009Q2

REPORT INFORMATION
  Report Type: 
  Country: None (occurrence: None)
  Receive Date: 20090618
  Receipt Date: 20090609
  Transmission Date: 20091009
  Serious: Yes (Hospitalization)
  Sender: FDA-Public Use
  Company Number: US-AMGEN-US350976

PATIENT
  Sex: Female

DRUGS (1)
  1. ROMIPLOSTIM [Suspect]
     Indication: IDIOPATHIC THROMBOCYTOPENIC PURPURA

REACTIONS (4)
  - NAUSEA [None]
  - OROPHARYNGEAL PAIN [None]
  - PYREXIA [None]
  - VOMITING [None]
